FAERS Safety Report 24637795 (Version 1)
Quarter: 2024Q4

REPORT INFORMATION
  Report Type: Spontaneous
  Country: US (occurrence: US)
  Receive Date: 20241119
  Receipt Date: 20241119
  Transmission Date: 20250115
  Serious: Yes (Other)
  Sender: DR REDDYS
  Company Number: US-DRL-USA-LIT/USA/24/0016958

PATIENT
  Age: 64 Year
  Sex: Male

DRUGS (3)
  1. NAPROXEN [Suspect]
     Active Substance: NAPROXEN
     Indication: Back pain
  2. ACETAMINOPHEN [Concomitant]
     Active Substance: ACETAMINOPHEN
     Indication: Back pain
  3. LIDOCAINE [Concomitant]
     Active Substance: LIDOCAINE
     Indication: Back pain

REACTIONS (1)
  - Drug ineffective [Unknown]
